FAERS Safety Report 4336254-X (Version None)
Quarter: 2004Q2

REPORT INFORMATION
  Report Type: 
  Country: None (occurrence: None)
  Receive Date: 20040407
  Receipt Date: 20040322
  Transmission Date: 20050107
  Serious: Yes (Congenital Anomaly)
  Sender: FDA-Public Use
  Company Number: GBS03013834

PATIENT
  Sex: Female

DRUGS (1)
  1. HUMATROPE [Suspect]
     Dates: end: 20021001

REACTIONS (7)
  - BREECH PRESENTATION [None]
  - CAESAREAN SECTION [None]
  - COMPLICATIONS OF MATERNAL EXPOSURE TO THERAPEUTIC DRUGS [None]
  - CONGENITAL ANOMALY [None]
  - FOETAL CARDIAC DISORDER [None]
  - MATERNAL DRUGS AFFECTING FOETUS [None]
  - OLIGOHYDRAMNIOS [None]
